FAERS Safety Report 14499045 (Version 1)
Quarter: 2018Q1

REPORT INFORMATION
  Report Type: Spontaneous
  Country: SG (occurrence: SG)
  Receive Date: 20180207
  Receipt Date: 20180207
  Transmission Date: 20180509
  Serious: Yes (Hospitalization)
  Sender: FDA-Public Use
  Company Number: SG-BAYER-2018-016379

PATIENT
  Sex: Male

DRUGS (3)
  1. MACITENTAN [Concomitant]
     Active Substance: MACITENTAN
     Dosage: 5 MG, QD
  2. VENTAVIS [Suspect]
     Active Substance: ILOPROST
     Dosage: UNK
     Dates: start: 20180112
  3. ADEMPAS [Suspect]
     Active Substance: RIOCIGUAT
     Dosage: 2.5 MG, TID
     Route: 048

REACTIONS (2)
  - Dyspnoea [None]
  - Off label use [None]

NARRATIVE: CASE EVENT DATE: 20180112
